FAERS Safety Report 5588472-0 (Version None)
Quarter: 2008Q1

REPORT INFORMATION
  Report Type: 
  Country: None (occurrence: None)
  Receive Date: 20080111
  Receipt Date: 20080102
  Transmission Date: 20080703
  Serious: Yes (Other)
  Sender: FDA-Public Use
  Company Number: US-BRACCO-000024

PATIENT
  Sex: Male

DRUGS (2)
  1. PROHANCE [Suspect]
     Indication: NUCLEAR MAGNETIC RESONANCE IMAGING
     Route: 065
     Dates: start: 20060112, end: 20060112
  2. PROHANCE [Suspect]
     Indication: BONE PAIN
     Route: 065
     Dates: start: 20060112, end: 20060112

REACTIONS (1)
  - PARALYSIS [None]
